FAERS Safety Report 21359516 (Version 1)
Quarter: 2022Q3

REPORT INFORMATION
  Report Type: Report from Study
  Country: US (occurrence: None)
  Receive Date: 20220921
  Receipt Date: 20220921
  Transmission Date: 20221027
  Serious: Yes (Other)
  Sender: FDA-Public Use
  Company Number: 2022A323372

PATIENT
  Sex: Female

DRUGS (2)
  1. LYNPARZA [Suspect]
     Active Substance: OLAPARIB
     Indication: Breast cancer female
     Route: 048
     Dates: start: 20220816
  2. LYNPARZA [Suspect]
     Active Substance: OLAPARIB
     Indication: Iron deficiency anaemia
     Route: 048
     Dates: start: 20220816

REACTIONS (1)
  - Surgery [Unknown]
